FAERS Safety Report 7141357-0 (Version None)
Quarter: 2010Q4

REPORT INFORMATION
  Report Type: 
  Country: None (occurrence: None)
  Receive Date: 20101203
  Receipt Date: 20101203
  Transmission Date: 20110411
  Serious: No
  Sender: FDA-Public Use
  Company Number: None

PATIENT
  Age: 61 Year
  Sex: Female
  Weight: 57.1532 kg

DRUGS (1)
  1. NEULASTA [Suspect]
     Indication: UTERINE LEIOMYOSARCOMA
     Dosage: INJECTION EVERY 3 WEEKS SQ
     Route: 058
     Dates: start: 20101104, end: 20101123

REACTIONS (2)
  - BONE PAIN [None]
  - WHITE BLOOD CELL COUNT INCREASED [None]
